FAERS Safety Report 26095052 (Version 1)
Quarter: 2025Q4

REPORT INFORMATION
  Report Type: Spontaneous
  Country: EU (occurrence: EU)
  Receive Date: 20251127
  Receipt Date: 20251127
  Transmission Date: 20260118
  Serious: Yes (Congenital Anomaly, Other)
  Sender: VIIV
  Company Number: EU-VIIV HEALTHCARE-ES2025GSK152235

PATIENT
  Sex: Male

DRUGS (3)
  1. ZIDOVUDINE [Suspect]
     Active Substance: ZIDOVUDINE
     Indication: HIV infection
     Dosage: UNK
  2. LAMIVUDINE [Suspect]
     Active Substance: LAMIVUDINE
     Indication: HIV infection
     Dosage: UNK
  3. RALTEGRAVIR [Suspect]
     Active Substance: RALTEGRAVIR
     Indication: HIV infection

REACTIONS (6)
  - Gastroschisis [Unknown]
  - Foetal distress syndrome [Unknown]
  - HIV infection [Unknown]
  - Human immunodeficiency virus transmission [Unknown]
  - Premature baby [Unknown]
  - Foetal exposure during pregnancy [Unknown]
